FAERS Safety Report 20716381 (Version 1)
Quarter: 2022Q2

REPORT INFORMATION
  Report Type: Spontaneous
  Country: CA (occurrence: CA)
  Receive Date: 20220416
  Receipt Date: 20220416
  Transmission Date: 20220721
  Serious: Yes (Other)
  Sender: FDA-Public Use
  Company Number: CA-CELLTRION INC.-2022CA004384

PATIENT

DRUGS (1)
  1. TRUXIMA [Suspect]
     Active Substance: RITUXIMAB-ABBS
     Indication: Immune thrombocytopenia
     Dosage: 700 MG WEEKLY X 4 (375 MG/M2; TOTAL: 2800MG)

REACTIONS (4)
  - Immune thrombocytopenia [Unknown]
  - Insurance issue [Unknown]
  - Inability to afford medication [Unknown]
  - Off label use [Unknown]
